FAERS Safety Report 7894046-9 (Version None)
Quarter: 2011Q4

REPORT INFORMATION
  Report Type: 
  Country: None (occurrence: None)
  Receive Date: 20111104
  Receipt Date: 20111102
  Transmission Date: 20120403
  Serious: Yes (Other)
  Sender: FDA-Public Use
  Company Number: US-AMGEN-USASP2011056981

PATIENT
  Age: 85 Year
  Sex: Male
  Weight: 81.6 kg

DRUGS (1)
  1. NPLATE [Suspect]
     Indication: IDIOPATHIC THROMBOCYTOPENIC PURPURA
     Dosage: 2 MUG/KG, QWK
     Dates: start: 20091101

REACTIONS (2)
  - CARDIAC DISORDER [None]
  - CHEST DISCOMFORT [None]
